FAERS Safety Report 23548037 (Version 1)
Quarter: 2024Q1

REPORT INFORMATION
  Report Type: Spontaneous
  Country: CA (occurrence: CA)
  Receive Date: 20240221
  Receipt Date: 20240221
  Transmission Date: 20240410
  Serious: Yes (Other)
  Sender: FDA-Public Use
  Company Number: None

PATIENT
  Age: 57 Year
  Sex: Female

DRUGS (5)
  1. PACLITAXEL [Suspect]
     Active Substance: PACLITAXEL
     Indication: Chemotherapy
  2. CARBOPLATIN [Concomitant]
     Active Substance: CARBOPLATIN
  3. DIPHENHYDRAMINE [Concomitant]
     Active Substance: DIPHENHYDRAMINE
  4. MAGNESIUM [Concomitant]
     Active Substance: MAGNESIUM
  5. SENOKOT [Concomitant]
     Active Substance: SENNOSIDES

REACTIONS (4)
  - Asthenia [Recovered/Resolved]
  - Chest pain [Recovered/Resolved]
  - Restlessness [Recovered/Resolved]
  - Stress cardiomyopathy [Recovered/Resolved]
